FAERS Safety Report 9896273 (Version 2)
Quarter: 2014Q1

REPORT INFORMATION
  Report Type: Spontaneous
  Country: US (occurrence: US)
  Receive Date: 20140213
  Receipt Date: 20140213
  Transmission Date: 20141002
  Serious: No
  Sender: FDA-Public Use
  Company Number: US-BRISTOL-MYERS SQUIBB COMPANY-18816728

PATIENT
  Age: 48 Year
  Sex: Female
  Weight: 68.93 kg

DRUGS (1)
  1. ABATACEPT SUBQ INJECTION 125MG/ML [Suspect]
     Dosage: ROUTE:IV,SUBQ?LAST INJ: MID JAN2013
     Route: 058
     Dates: start: 20121213, end: 201301

REACTIONS (1)
  - Rheumatoid arthritis [Unknown]
